FAERS Safety Report 13672005 (Version 1)
Quarter: 2017Q2

REPORT INFORMATION
  Report Type: Spontaneous
  Country: US (occurrence: US)
  Receive Date: 20170620
  Receipt Date: 20170620
  Transmission Date: 20170830
  Serious: Yes (Death, Other)
  Sender: FDA-Public Use
  Company Number: US-JAZZ-2017-US-007716

PATIENT
  Sex: Female

DRUGS (18)
  1. XYREM [Suspect]
     Active Substance: SODIUM OXYBATE
     Dosage: 3 G, BID
     Route: 048
     Dates: start: 2010
  2. ATIVAN [Concomitant]
     Active Substance: LORAZEPAM
  3. MINITRAN [Concomitant]
     Active Substance: NITROGLYCERIN
  4. MEVACOR [Concomitant]
     Active Substance: LOVASTATIN
  5. NEXIUM [Concomitant]
     Active Substance: ESOMEPRAZOLE MAGNESIUM
  6. SUCRALFATE. [Concomitant]
     Active Substance: SUCRALFATE
  7. ZETIA [Concomitant]
     Active Substance: EZETIMIBE
  8. HCTZ [Concomitant]
     Active Substance: HYDROCHLOROTHIAZIDE
  9. LOPRESSOR [Concomitant]
     Active Substance: METOPROLOL TARTRATE
  10. PAROXETINE. [Concomitant]
     Active Substance: PAROXETINE
  11. NITROQUICK [Concomitant]
     Active Substance: NITROGLYCERIN
  12. CHOLESTYRAMINE. [Concomitant]
     Active Substance: CHOLESTYRAMINE
  13. NORVASC [Concomitant]
     Active Substance: AMLODIPINE BESYLATE
  14. PROVIGIL [Concomitant]
     Active Substance: MODAFINIL
  15. VICODIN [Concomitant]
     Active Substance: ACETAMINOPHEN\HYDROCODONE BITARTRATE
  16. DARVOCET [Concomitant]
     Active Substance: ACETAMINOPHEN\PROPOXYPHENE HYDROCHLORIDE
  17. XYREM [Suspect]
     Active Substance: SODIUM OXYBATE
     Dosage: DOSE ADJUSTMENT
     Route: 048
     Dates: start: 200605, end: 2010
  18. XYREM [Suspect]
     Active Substance: SODIUM OXYBATE
     Indication: NARCOLEPSY
     Dosage: 2.25 G, BID
     Route: 048
     Dates: start: 200603, end: 200605

REACTIONS (1)
  - Death [Fatal]
